FAERS Safety Report 16611136 (Version 1)
Quarter: 2019Q3

REPORT INFORMATION
  Report Type: Spontaneous
  Country: AU (occurrence: AU)
  Receive Date: 20190722
  Receipt Date: 20190722
  Transmission Date: 20191004
  Serious: Yes (Other)
  Sender: FDA-Public Use
  Company Number: AU-AMREGENT-20191488

PATIENT
  Age: 41 Year
  Sex: Female

DRUGS (1)
  1. FERINJECT [Suspect]
     Active Substance: FERRIC CARBOXYMALTOSE
     Dosage: 1000 MG
     Route: 041
     Dates: start: 20190415, end: 20190415

REACTIONS (16)
  - Diarrhoea [Unknown]
  - Dysphonia [Unknown]
  - Muscle twitching [Unknown]
  - Laryngeal oedema [Unknown]
  - Skin discolouration [Unknown]
  - Hunger [Unknown]
  - Tremor [Unknown]
  - Pruritus [Unknown]
  - Blood pressure increased [Unknown]
  - Urticaria [Unknown]
  - Oropharyngeal discomfort [Unknown]
  - Loss of consciousness [Unknown]
  - Incorrect drug administration rate [Unknown]
  - Pharyngeal swelling [Recovering/Resolving]
  - Enlarged uvula [Unknown]
  - Rash generalised [Unknown]

NARRATIVE: CASE EVENT DATE: 201904
